FAERS Safety Report 9240080 (Version 1)
Quarter: 2013Q2

REPORT INFORMATION
  Report Type: Spontaneous
  Country: JP (occurrence: None)
  Receive Date: 20130417
  Receipt Date: 20130417
  Transmission Date: 20140414
  Serious: Yes (Hospitalization)
  Sender: FDA-Public Use
  Company Number: AXC-2013-000147

PATIENT
  Age: 56 Year
  Sex: Male

DRUGS (15)
  1. URSODEOXYCHOLIC ACID [Suspect]
     Indication: PRODUCT USED FOR UNKNOWN INDICATION
     Route: 048
  2. VANCOMYCIN [Suspect]
     Dates: start: 2008, end: 2008
  3. LINEZOLID [Suspect]
     Route: 042
     Dates: start: 2008
  4. IMIPENEM CILASTATIN/00820501/(CILASTATIN SODIUM, IMIPENEM) [Concomitant]
  5. FLUDARABINE (FLUDARABINE) [Concomitant]
  6. MELPHALAN [Concomitant]
  7. TACROLIMUS (TACROLIMUS) [Concomitant]
  8. METHOTREXATE (METHOTREXATE) [Concomitant]
  9. FILGRASTIM (FILGRASTIM) [Concomitant]
  10. AMPHOTERICIN B (AMPHOTERICIN B) [Concomitant]
  11. FAMOTIDINE (FAMOTIDINE) [Concomitant]
  12. ACYCLOVIR/00587301/(ACICLOVIR) [Concomitant]
  13. FLUCONAZOLE (FLUCONAZOLE) [Concomitant]
  14. CYTARABINE (CYTARABINE) [Concomitant]
  15. ACLARUBICIN (ACLARUBICIN) [Concomitant]

REACTIONS (9)
  - Refractory cytopenia with multilineage dysplasia [None]
  - Staphylococcal bacteraemia [None]
  - Oral disorder [None]
  - Oral bacterial infection [None]
  - Bacterial diarrhoea [None]
  - Renal failure [None]
  - Aplasia pure red cell [None]
  - Anaemia [None]
  - Reticulocyte count decreased [None]
